FAERS Safety Report 12277329 (Version 1)
Quarter: 2016Q2

REPORT INFORMATION
  Report Type: Report from Study
  Country: US (occurrence: US)
  Receive Date: 20160418
  Receipt Date: 20160418
  Transmission Date: 20160815
  Serious: Yes (Hospitalization)
  Sender: FDA-Public Use
  Company Number: US-BIOGEN-2015BI099996

PATIENT
  Age: 77 Year
  Sex: Male
  Weight: 61.6 kg

DRUGS (10)
  1. NEXIUM [Concomitant]
     Active Substance: ESOMEPRAZOLE MAGNESIUM
     Indication: GASTROOESOPHAGEAL REFLUX DISEASE
     Route: 048
     Dates: start: 2013
  2. AMIODIPINE/ BENAZEPRIL [Concomitant]
     Route: 048
     Dates: start: 20150711
  3. LIPITOR [Concomitant]
     Active Substance: ATORVASTATIN CALCIUM
     Indication: HYPERLIPIDAEMIA
     Route: 048
     Dates: start: 2010
  4. LIPITOR [Concomitant]
     Active Substance: ATORVASTATIN CALCIUM
     Route: 048
     Dates: start: 20150710
  5. AMIODIPINE/ BENAZEPRIL [Concomitant]
     Indication: HYPERTENSION
     Route: 048
     Dates: start: 20131028
  6. DONEPEZIL. [Concomitant]
     Active Substance: DONEPEZIL
     Route: 048
     Dates: start: 20150710
  7. METOPROLOL. [Concomitant]
     Active Substance: METOPROLOL
     Indication: HYPERTENSION
     Route: 048
     Dates: start: 2001
  8. FINASTERIDE. [Concomitant]
     Active Substance: FINASTERIDE
     Indication: BENIGN PROSTATIC HYPERPLASIA
     Route: 048
     Dates: start: 2010
  9. PROZAC [Concomitant]
     Active Substance: FLUOXETINE HYDROCHLORIDE
     Indication: DEPRESSION
     Route: 048
     Dates: start: 20140804
  10. BIIB037 [Suspect]
     Active Substance: ADUCANUMAB
     Indication: DEMENTIA ALZHEIMER^S TYPE
     Route: 042
     Dates: start: 20150210

REACTIONS (1)
  - Inflammatory bowel disease [Recovered/Resolved]

NARRATIVE: CASE EVENT DATE: 20150708
